FAERS Safety Report 6036404-3 (Version None)
Quarter: 2009Q1

REPORT INFORMATION
  Report Type: 
  Country: None (occurrence: None)
  Receive Date: 20090112
  Receipt Date: 20081229
  Transmission Date: 20090719
  Serious: Yes (Hospitalization)
  Sender: FDA-Public Use
  Company Number: KV200801616

PATIENT
  Age: 68 Year
  Sex: Female

DRUGS (11)
  1. PROPAFENONE HYDROCHLORIDE [Suspect]
     Indication: ATRIAL FIBRILLATION
     Dosage: 300 MG, PRN, ORAL
     Route: 048
     Dates: start: 20040101, end: 20081201
  2. FUROSEMIDE (FUROSEMIDE) [Concomitant]
  3. NORVASC [Concomitant]
  4. ZOCOR [Concomitant]
  5. KLONOPIN [Concomitant]
  6. FOSAMAX [Concomitant]
  7. METOPROLOL TARTRATE [Concomitant]
  8. WARFARIN SODIUM [Concomitant]
  9. GLUCOSAMINE /CHOND (CHONDROITIN SULFATE SODIUM, GLUCOSAMINE) [Concomitant]
  10. VITAMINS NOS (VITAMINS NOS) [Concomitant]
  11. CALCIUM (CALCIUM) [Concomitant]

REACTIONS (4)
  - BLOOD PRESSURE INCREASED [None]
  - CATHETERISATION CARDIAC [None]
  - PRODUCT QUALITY ISSUE [None]
  - TACHYCARDIA [None]
